FAERS Safety Report 16762655 (Version 3)
Quarter: 2019Q3

REPORT INFORMATION
  Report Type: Spontaneous
  Country: BR (occurrence: BR)
  Receive Date: 20190831
  Receipt Date: 20190923
  Transmission Date: 20191005
  Serious: Yes (Hospitalization, Other)
  Sender: FDA-Public Use
  Company Number: PHHY2019BR201725

PATIENT
  Age: 57 Year
  Sex: Male
  Weight: 80 kg

DRUGS (2)
  1. SELOZOK [Concomitant]
     Active Substance: METOPROLOL SUCCINATE
     Indication: HYPERTENSION
     Dosage: 50 MG, UNK
     Route: 048
  2. TASIGNA [Suspect]
     Active Substance: NILOTINIB
     Indication: CHRONIC MYELOID LEUKAEMIA
     Dosage: 400 MG, BID
     Route: 048
     Dates: start: 201603

REACTIONS (15)
  - Rash pruritic [Recovered/Resolved]
  - Endocarditis [Recovered/Resolved]
  - Systemic inflammatory response syndrome [Recovering/Resolving]
  - Rash erythematous [Recovered/Resolved]
  - Cytogenetic analysis abnormal [Unknown]
  - Rash [Unknown]
  - Inflammatory marker increased [Unknown]
  - Skin oedema [Unknown]
  - Rash erythematous [Recovering/Resolving]
  - Skin lesion [Recovering/Resolving]
  - Mitral valve disease [Unknown]
  - Perivascular dermatitis [Recovered/Resolved]
  - C-reactive protein increased [Not Recovered/Not Resolved]
  - Leukocytosis [Not Recovered/Not Resolved]
  - Pyrexia [Recovering/Resolving]

NARRATIVE: CASE EVENT DATE: 2016
